FAERS Safety Report 6092363-9 (Version None)
Quarter: 2009Q1

REPORT INFORMATION
  Report Type: 
  Country: None (occurrence: None)
  Receive Date: 20090223
  Receipt Date: 20090223
  Transmission Date: 20090719
  Serious: No
  Sender: FDA-Public Use
  Company Number: None

PATIENT
  Sex: Female
  Weight: 77.27 kg

DRUGS (7)
  1. ENALAPRIL MALEATE [Suspect]
     Dosage: MG TABLET 20 MG QD ORAL
     Route: 048
     Dates: start: 20080814, end: 20090220
  2. ASPIRIN [Concomitant]
  3. ATENOLOL [Concomitant]
  4. LIDOCAINE [Concomitant]
  5. LIPITOR [Concomitant]
  6. PAXIL [Concomitant]
  7. VITAMIN D3 [Concomitant]

REACTIONS (1)
  - COUGH [None]
